FAERS Safety Report 9995334 (Version 3)
Quarter: 2017Q1

REPORT INFORMATION
  Report Type: Spontaneous
  Country: KR (occurrence: KR)
  Receive Date: 20140311
  Receipt Date: 20170127
  Transmission Date: 20170429
  Serious: Yes (Other)
  Sender: FDA-Public Use
  Company Number: KR-JNJFOC-20140302278

PATIENT

DRUGS (4)
  1. METHOTREXATE. [Concomitant]
     Active Substance: METHOTREXATE
     Indication: PRODUCT USED FOR UNKNOWN INDICATION
     Dosage: (12.5?25MG/WEEK)
     Route: 065
  2. INFLIXIMAB, RECOMBINANT [Suspect]
     Active Substance: INFLIXIMAB
     Indication: RHEUMATOID ARTHRITIS
     Dosage: AT WEEKS 0, 2, 6 AND THEN EVERY 8 WEEKS UP TO WEEK 54
     Route: 042
  3. CT-P13 (REMICADE BIOSIMILAR) [Suspect]
     Active Substance: INVESTIGATIONAL PRODUCT
     Indication: RHEUMATOID ARTHRITIS
     Route: 065
  4. FOLIC ACID. [Concomitant]
     Active Substance: FOLIC ACID
     Route: 065

REACTIONS (19)
  - Pyrexia [Unknown]
  - Latent tuberculosis [Unknown]
  - Rash [Unknown]
  - Rhinitis [Unknown]
  - Urinary tract infection [Unknown]
  - Infusion related reaction [Unknown]
  - Drug specific antibody present [Unknown]
  - Anaemia [Unknown]
  - Pneumonia [Unknown]
  - Headache [Unknown]
  - Lower respiratory tract infection [Unknown]
  - Infection [Unknown]
  - Rheumatoid arthritis [Unknown]
  - Upper respiratory tract infection [Unknown]
  - Angiopathy [Unknown]
  - Drug ineffective [Unknown]
  - Uterine haemorrhage [Unknown]
  - Herpes virus infection [Unknown]
  - Liver function test abnormal [Unknown]
